FAERS Safety Report 8844328 (Version 1)
Quarter: 2012Q4

REPORT INFORMATION
  Report Type: Report from Study
  Country: NO (occurrence: NO)
  Receive Date: 20121017
  Receipt Date: 20121017
  Transmission Date: 20130627
  Serious: Yes (Congenital Anomaly)
  Sender: FDA-Public Use
  Company Number: NO-UCBSA-030714

PATIENT

DRUGS (3)
  1. LEVETIRACETAM [Suspect]
     Indication: EPILEPSY
     Dosage: DAILY DOSE: 1500
     Route: 064
  2. TRILEPTAL [Suspect]
     Indication: EPILEPSY
     Dosage: DAILY DOSE: 1200 MG
     Route: 064
  3. VALPROIC ACID [Suspect]
     Indication: EPILEPSY
     Route: 064

REACTIONS (2)
  - Polydactyly [Unknown]
  - Foetal exposure during pregnancy [Recovered/Resolved]
